FAERS Safety Report 9910767 (Version 1)
Quarter: 2014Q1

REPORT INFORMATION
  Report Type: Spontaneous
  Country: IT (occurrence: IT)
  Receive Date: 20140219
  Receipt Date: 20140219
  Transmission Date: 20141002
  Serious: Yes (Other)
  Sender: FDA-Public Use
  Company Number: IT-BAXTER-2014BAX007516

PATIENT
  Age: 10 Year
  Sex: Female

DRUGS (1)
  1. KIOVIG 100 MG/ML SOLUTION FOR INFUSION [Suspect]
     Indication: ATAXIA TELANGIECTASIA
     Route: 042

REACTIONS (1)
  - Rosacea [Recovered/Resolved]
